FAERS Safety Report 12380490 (Version 4)
Quarter: 2017Q1

REPORT INFORMATION
  Report Type: Spontaneous
  Country: US (occurrence: US)
  Receive Date: 20160518
  Receipt Date: 20170202
  Transmission Date: 20170428
  Serious: No
  Sender: FDA-Public Use
  Company Number: US-PFIZER INC-2016254245

PATIENT
  Age: 81 Year
  Sex: Female

DRUGS (4)
  1. IBRANCE [Suspect]
     Active Substance: PALBOCICLIB
     Dosage: 125 MG, UNK
     Dates: start: 20160430
  2. IBRANCE [Suspect]
     Active Substance: PALBOCICLIB
     Dosage: UNK
     Dates: start: 201603
  3. FULVESTRANT [Concomitant]
     Active Substance: FULVESTRANT
     Dosage: UNK
  4. FASLODEX [Concomitant]
     Active Substance: FULVESTRANT
     Dosage: UNK

REACTIONS (6)
  - Psoriasis [Unknown]
  - Oral pain [Unknown]
  - Alopecia [Unknown]
  - Dyspnoea exertional [Unknown]
  - Rash [Unknown]
  - Myalgia [Unknown]
